FAERS Safety Report 18018494 (Version 1)
Quarter: 2020Q3

REPORT INFORMATION
  Report Type: Spontaneous
  Country: CN (occurrence: CN)
  Receive Date: 20200714
  Receipt Date: 20200714
  Transmission Date: 20201103
  Serious: Yes (Other)
  Sender: FDA-Public Use
  Company Number: CN-ROCHE-2638930

PATIENT
  Age: 56 Year

DRUGS (8)
  1. DOCETAXEL. [Concomitant]
     Active Substance: DOCETAXEL
     Indication: INVASIVE DUCTAL BREAST CARCINOMA
  2. TRASTUZUMAB. [Suspect]
     Active Substance: TRASTUZUMAB
     Indication: INVASIVE DUCTAL BREAST CARCINOMA
     Dosage: FOR A YEAR
     Route: 065
     Dates: start: 20161204, end: 20180415
  3. VINORELBINE [Concomitant]
     Active Substance: VINORELBINE TARTRATE
     Indication: INVASIVE DUCTAL BREAST CARCINOMA
  4. LAPATINIB [Concomitant]
     Active Substance: LAPATINIB
     Indication: INVASIVE DUCTAL BREAST CARCINOMA
  5. TRASTUZUMAB EMTANSINE [Suspect]
     Active Substance: ADO-TRASTUZUMAB EMTANSINE
     Indication: INVASIVE DUCTAL BREAST CARCINOMA
     Dosage: 16 TIMES
     Route: 065
     Dates: start: 20181205
  6. CAPECITABINE. [Suspect]
     Active Substance: CAPECITABINE
     Indication: INVASIVE DUCTAL BREAST CARCINOMA
     Dosage: XHP REGIMEN
     Route: 048
  7. CYCLOPHOSPHAMIDE. [Concomitant]
     Active Substance: CYCLOPHOSPHAMIDE
     Indication: INVASIVE DUCTAL BREAST CARCINOMA
  8. PERTUZUMAB. [Suspect]
     Active Substance: PERTUZUMAB
     Indication: INVASIVE DUCTAL BREAST CARCINOMA
     Dosage: XLHP REGIMEN
     Route: 065

REACTIONS (2)
  - Interstitial lung disease [Unknown]
  - Diarrhoea [Unknown]
